FAERS Safety Report 17316061 (Version 2)
Quarter: 2020Q2

REPORT INFORMATION
  Report Type: Report from Study
  Country: US (occurrence: US)
  Receive Date: 20200124
  Receipt Date: 20200415
  Transmission Date: 20200713
  Serious: Yes (Other)
  Sender: FDA-Public Use
  Company Number: US-TAKEDA-2018TUS027067

PATIENT
  Sex: Male

DRUGS (14)
  1. PONATINIB [Suspect]
     Active Substance: PONATINIB
     Indication: CHRONIC MYELOID LEUKAEMIA
     Dosage: 45 MILLIGRAM, QD
     Route: 048
     Dates: start: 20180713
  2. POTASSIUM [Concomitant]
     Active Substance: POTASSIUM
     Dosage: UNK
     Route: 065
  3. POSACONAZOLE [Concomitant]
     Active Substance: POSACONAZOLE
     Dosage: UNK
     Route: 065
  4. TRAMADOL HCL [Concomitant]
     Active Substance: TRAMADOL HYDROCHLORIDE
     Dosage: UNK
     Route: 065
  5. ACYCLOVIR                          /00587301/ [Concomitant]
     Active Substance: ACYCLOVIR
     Dosage: UNK
     Route: 065
  6. PREDNISONE. [Concomitant]
     Active Substance: PREDNISONE
     Dosage: UNK
     Route: 065
  7. TACROLIMUS. [Concomitant]
     Active Substance: TACROLIMUS
     Dosage: UNK
     Route: 065
  8. LETERMOVIR [Concomitant]
     Active Substance: LETERMOVIR
     Dosage: UNK
     Route: 065
  9. PONATINIB [Suspect]
     Active Substance: PONATINIB
     Indication: GRAFT VERSUS HOST DISEASE
     Dosage: 15 MILLIGRAM, QD
     Route: 048
  10. ERGOCALCIFEROL. [Concomitant]
     Active Substance: ERGOCALCIFEROL
     Dosage: UNK
     Route: 065
  11. URSODIOL. [Concomitant]
     Active Substance: URSODIOL
     Dosage: UNK
     Route: 065
  12. BUDESONIDE. [Concomitant]
     Active Substance: BUDESONIDE
     Dosage: UNK
     Route: 065
  13. DAPSONE. [Concomitant]
     Active Substance: DAPSONE
     Dosage: UNK
     Route: 065
  14. JAKAFI [Concomitant]
     Active Substance: RUXOLITINIB
     Dosage: UNK
     Route: 065

REACTIONS (4)
  - Fatigue [Unknown]
  - Liver disorder [Unknown]
  - Off label use [Unknown]
  - Muscular weakness [Unknown]
